FAERS Safety Report 6035754-4 (Version None)
Quarter: 2009Q1

REPORT INFORMATION
  Report Type: 
  Country: None (occurrence: None)
  Receive Date: 20090113
  Receipt Date: 20090105
  Transmission Date: 20090719
  Serious: Yes (Hospitalization)
  Sender: FDA-Public Use
  Company Number: AU-PFIZER INC-2008157337

PATIENT

DRUGS (6)
  1. ATORVASTATIN CALCIUM [Suspect]
     Indication: METABOLIC DISORDER
     Dosage: 20 MG, 1X/DAY
     Route: 048
     Dates: start: 20051115, end: 20060219
  2. DICLOFENAC SODIUM [Suspect]
     Indication: ARTHRITIS
     Dosage: 150 MG, UNK
     Dates: start: 20060208, end: 20060219
  3. INDAPAMIDE HEMIHYDRATE [Suspect]
     Indication: ESSENTIAL HYPERTENSION
     Dosage: 2.5 MG, 1X/DAY
     Route: 048
     Dates: end: 20060219
  4. TRIMETHOPRIM [Suspect]
     Indication: URINARY TRACT DISORDER
     Dosage: 300 MG, UNK
     Dates: start: 20060216, end: 20060222
  5. ACETYLSALICYLIC ACID [Concomitant]
     Dosage: 100 MG, UNK
  6. ATENOLOL [Concomitant]
     Indication: ESSENTIAL HYPERTENSION
     Dosage: 100 MG, UNK

REACTIONS (6)
  - BLOOD CREATININE INCREASED [None]
  - DEHYDRATION [None]
  - MALAISE [None]
  - NAUSEA [None]
  - RENAL FAILURE ACUTE [None]
  - VOMITING [None]
